FAERS Safety Report 15315358 (Version 1)
Quarter: 2018Q3

REPORT INFORMATION
  Report Type: Spontaneous
  Country: US (occurrence: US)
  Receive Date: 20180815
  Receipt Date: 20180815
  Transmission Date: 20181010
  Serious: No
  Sender: FDA-Public Use
  Company Number: None

PATIENT
  Age: 60 Year
  Sex: Female
  Weight: 63.9 kg

DRUGS (10)
  1. ZOLPIDEM 5MG TAB TOR  GENERIC FOR AMBIEN 5 MG TAB [Suspect]
     Active Substance: ZOLPIDEM TARTRATE
     Indication: INITIAL INSOMNIA
     Dosage: ?          QUANTITY:1 TABLET(S);?
     Route: 048
     Dates: start: 20180802
  2. VITAMIN D [Concomitant]
     Active Substance: CHOLECALCIFEROL
  3. SELENIUM [Concomitant]
     Active Substance: SELENIUM
  4. VITAMIN B12 [Concomitant]
     Active Substance: CYANOCOBALAMIN
  5. DULOXETINE. [Concomitant]
     Active Substance: DULOXETINE
  6. B1 [Concomitant]
  7. UBIQUINOL [Concomitant]
     Active Substance: UBIQUINOL
  8. MULTI?VITAMIN [Concomitant]
     Active Substance: .ALPHA.-TOCOPHEROL ACETATE, DL-\ASCORBIC ACID\CYANOCOBALAMIN\FLUORIDE ION\FOLIC ACID\NIACIN\PYRIDOXINE\RIBOFLAVIN\THIAMINE\VITAMIN A\VITAMIN D
  9. B6 [Concomitant]
     Active Substance: PYRIDOXINE HYDROCHLORIDE
  10. OMEGA?3 ACIDS [Concomitant]
     Active Substance: OMEGA-3 FATTY ACIDS

REACTIONS (3)
  - Product substitution issue [None]
  - Somnolence [None]
  - Drug effect delayed [None]

NARRATIVE: CASE EVENT DATE: 20180802
